FAERS Safety Report 8470935-1 (Version None)
Quarter: 2012Q2

REPORT INFORMATION
  Report Type: 
  Country: None (occurrence: None)
  Receive Date: 20120627
  Receipt Date: 20120619
  Transmission Date: 20120825
  Serious: No
  Sender: FDA-Public Use
  Company Number: US-SANOFI-AVENTIS-2012SA039109

PATIENT
  Age: 16 Year
  Sex: Female
  Weight: 47 kg

DRUGS (6)
  1. FLUOXETINE [Concomitant]
     Indication: DEPRESSION
     Dates: start: 20080218
  2. GLYCOPYRROLATE [Concomitant]
     Dates: start: 20080218
  3. ALL OTHER THERAPEUTIC PRODUCTS [Concomitant]
     Dates: start: 20080218
  4. ARAVA [Suspect]
     Route: 065
     Dates: start: 20100104, end: 20120530
  5. INFLIXIMAB [Concomitant]
     Route: 065
     Dates: start: 20080218
  6. BIOTIN [Concomitant]
     Indication: DEPRESSION
     Dosage: TOOK ONE TABLET
     Dates: start: 20080218

REACTIONS (1)
  - MATERNAL EXPOSURE DURING PREGNANCY [None]
